FAERS Safety Report 6327618-3 (Version None)
Quarter: 2009Q3

REPORT INFORMATION
  Report Type: 
  Country: None (occurrence: None)
  Receive Date: 20090825
  Receipt Date: 20090819
  Transmission Date: 20100115
  Serious: Yes (Other)
  Sender: FDA-Public Use
  Company Number: US-KINGPHARMUSA00001-K200901010

PATIENT
  Age: 84 Year
  Sex: Female

DRUGS (12)
  1. ALTACE [Suspect]
     Indication: HYPERTENSION
     Dosage: 10 MG, QD
     Route: 048
     Dates: start: 20060101
  2. MODURETIC 5-50 [Suspect]
     Indication: HYPERTENSION
     Dosage: 5/50 MG, QD
     Route: 048
     Dates: start: 20060101, end: 20090805
  3. ALLOPURINOL [Concomitant]
  4. FOLATE SODIUM [Concomitant]
     Indication: ANAEMIA
  5. BISOPROLOL FUMARATE [Concomitant]
  6. FOSAMAX [Concomitant]
  7. LANSOPRAZOLE [Concomitant]
  8. DOBETIN [Concomitant]
     Indication: ANAEMIA
     Dosage: UNK
  9. RIFACOL [Concomitant]
  10. IPERTEN [Concomitant]
     Indication: HYPERTENSION
  11. DELTACORTENE [Concomitant]
     Indication: ANAEMIA
  12. LACTOBACILLUS [Concomitant]
     Indication: SUPPLEMENTATION THERAPY

REACTIONS (4)
  - DIZZINESS [None]
  - FACE INJURY [None]
  - FALL [None]
  - HYPERKALAEMIA [None]
